FAERS Safety Report 5658766-9 (Version None)
Quarter: 2008Q1

REPORT INFORMATION
  Report Type: 
  Country: None (occurrence: None)
  Receive Date: 20080310
  Receipt Date: 20070411
  Transmission Date: 20080703
  Serious: No
  Sender: FDA-Public Use
  Company Number: US-BAYER-200711101BCC

PATIENT
  Sex: Female
  Weight: 102 kg

DRUGS (6)
  1. ALEVE [Suspect]
     Indication: ARTHRALGIA
     Dosage: UNIT DOSE: 220 MG
     Route: 048
     Dates: start: 20020101, end: 20070410
  2. LIPITOR [Concomitant]
  3. ATENOLOL [Concomitant]
  4. SYNTHROID [Concomitant]
  5. KLOR-CON [Concomitant]
  6. ASPIRIN [Concomitant]

REACTIONS (1)
  - PHOTOSENSITIVITY REACTION [None]
